FAERS Safety Report 6008914-6 (Version None)
Quarter: 2008Q4

REPORT INFORMATION
  Report Type: 
  Country: None (occurrence: None)
  Receive Date: 20081216
  Receipt Date: 20081202
  Transmission Date: 20090506
  Serious: Yes (Hospitalization)
  Sender: FDA-Public Use
  Company Number: WAES 0812USA01814

PATIENT
  Age: 42 Year
  Sex: Female
  Weight: 38.5557 kg

DRUGS (13)
  1. ISENTRESS [Suspect]
     Indication: HIV INFECTION
     Dosage: 400 MG/Q12H/PO
     Route: 048
     Dates: start: 20081106
  2. PREZISTA [Suspect]
     Indication: HIV INFECTION
     Dosage: 600 MG/Q12H/PO
     Route: 048
     Dates: start: 20081106
  3. INTELENCE [Suspect]
     Indication: HIV INFECTION
     Dosage: 200 MG/Q12H/PO
     Route: 048
     Dates: start: 20081106
  4. COMPAZINE [Concomitant]
  5. DESYREL [Concomitant]
  6. MARINOL [Concomitant]
  7. NORVIR [Concomitant]
  8. PEPCID [Concomitant]
  9. RETROVIR [Concomitant]
  10. TRUVADA [Concomitant]
  11. ZOFRAN [Concomitant]
  12. POTASSIUM CHLORIDE + SODIUM CH [Concomitant]
  13. PREDNISONE [Concomitant]

REACTIONS (24)
  - ACTIVITIES OF DAILY LIVING IMPAIRED [None]
  - ANOREXIA [None]
  - ASTHENIA [None]
  - BACTERIA URINE IDENTIFIED [None]
  - BLOOD CALCIUM DECREASED [None]
  - BLOOD CHLORIDE INCREASED [None]
  - BLOOD POTASSIUM DECREASED [None]
  - CACHEXIA [None]
  - CARBON DIOXIDE DECREASED [None]
  - CHEILITIS [None]
  - CYTOMEGALOVIRUS TEST POSITIVE [None]
  - DEHYDRATION [None]
  - DEPRESSION [None]
  - DIARRHOEA [None]
  - FAILURE TO THRIVE [None]
  - FATIGUE [None]
  - HYPOPHAGIA [None]
  - HYPOVOLAEMIA [None]
  - IMMUNE RECONSTITUTION SYNDROME [None]
  - MALNUTRITION [None]
  - PANCYTOPENIA [None]
  - PYREXIA [None]
  - SOCIAL AVOIDANT BEHAVIOUR [None]
  - WEIGHT DECREASED [None]
